FAERS Safety Report 18647153 (Version 1)
Quarter: 2020Q4

REPORT INFORMATION
  Report Type: Other
  Country: CA (occurrence: CA)
  Receive Date: 20201222
  Receipt Date: 20201222
  Transmission Date: 20210114
  Serious: Yes (Hospitalization, Other)
  Sender: FDA-Public Use
  Company Number: CA-CELLTRION INC.-2020CA034019

PATIENT

DRUGS (21)
  1. ACTEMRA [Suspect]
     Active Substance: TOCILIZUMAB
     Dosage: 514 MG, 1 EVERY 4 WEEKS
     Route: 042
  2. ACTEMRA [Suspect]
     Active Substance: TOCILIZUMAB
     Dosage: 518 MG, 1 EVERY 4 WEEKS
     Route: 042
  3. MOTRIN [Concomitant]
     Active Substance: IBUPROFEN
  4. PREDNISONE. [Concomitant]
     Active Substance: PREDNISONE
  5. ACTEMRA [Suspect]
     Active Substance: TOCILIZUMAB
     Dosage: 512.8 MG, 1 EVERY 4 WEEKS
     Route: 042
  6. METHOTREXATE. [Suspect]
     Active Substance: METHOTREXATE
     Indication: PRODUCT USED FOR UNKNOWN INDICATION
     Route: 065
  7. LYRICA [Concomitant]
     Active Substance: PREGABALIN
  8. PANTOLOC [PANTOPRAZOLE] [Concomitant]
     Active Substance: PANTOPRAZOLE SODIUM
  9. RISEDRONATE SODIUM. [Concomitant]
     Active Substance: RISEDRONATE SODIUM
  10. ACTEMRA [Suspect]
     Active Substance: TOCILIZUMAB
     Dosage: 504 MG, 1 EVERY 4 WEEKS
     Route: 042
  11. RITUXIMAB (UNKNOWN) [Suspect]
     Active Substance: RITUXIMAB
     Indication: RHEUMATOID ARTHRITIS
     Dosage: 1000 MG
     Route: 041
  12. FOLIC ACID. [Concomitant]
     Active Substance: FOLIC ACID
  13. ACTEMRA [Suspect]
     Active Substance: TOCILIZUMAB
     Dosage: UNK
     Route: 042
  14. ACTEMRA [Suspect]
     Active Substance: TOCILIZUMAB
     Dosage: 520 MG, 1 EVERY 4 WEEKS
     Route: 042
  15. ACTEMRA [Suspect]
     Active Substance: TOCILIZUMAB
     Indication: RHEUMATOID ARTHRITIS
     Dosage: 526.4 MG, 1 EVERY 4 WEEKS
     Route: 042
  16. ACTEMRA [Suspect]
     Active Substance: TOCILIZUMAB
     Dosage: UNK
     Route: 042
  17. ACTEMRA [Suspect]
     Active Substance: TOCILIZUMAB
     Dosage: 512 MG, 1 EVERY 4 WEEKS
     Route: 042
  18. ACTEMRA [Suspect]
     Active Substance: TOCILIZUMAB
     Dosage: 523 MG, 1 EVERY 4 WEEKS
     Route: 042
  19. ACTEMRA [Suspect]
     Active Substance: TOCILIZUMAB
     Dosage: 512 MG, 1 EVERY 4 WEEKS
     Route: 042
  20. ACTEMRA [Suspect]
     Active Substance: TOCILIZUMAB
     Indication: RHEUMATOID ARTHRITIS
     Dosage: 526 MG, 1 EVERY 4 WEEKS
     Route: 042
  21. CARBOCAL [Concomitant]
     Active Substance: CALCIUM CARBONATE

REACTIONS (33)
  - Ingrowing nail [Not Recovered/Not Resolved]
  - Abdominal pain upper [Not Recovered/Not Resolved]
  - Localised infection [Not Recovered/Not Resolved]
  - Nasal discharge discolouration [Not Recovered/Not Resolved]
  - Weight decreased [Not Recovered/Not Resolved]
  - Fatigue [Not Recovered/Not Resolved]
  - Heart rate increased [Not Recovered/Not Resolved]
  - Myalgia [Not Recovered/Not Resolved]
  - Pyelonephritis [Not Recovered/Not Resolved]
  - Tooth infection [Not Recovered/Not Resolved]
  - Arthralgia [Not Recovered/Not Resolved]
  - Bronchitis [Not Recovered/Not Resolved]
  - Diarrhoea [Not Recovered/Not Resolved]
  - Mouth ulceration [Not Recovered/Not Resolved]
  - Drug ineffective [Not Recovered/Not Resolved]
  - Back pain [Not Recovered/Not Resolved]
  - Cough [Not Recovered/Not Resolved]
  - Gastroenteritis [Not Recovered/Not Resolved]
  - Nasopharyngitis [Not Recovered/Not Resolved]
  - Infusion related reaction [Not Recovered/Not Resolved]
  - Kidney infection [Not Recovered/Not Resolved]
  - Oedema [Not Recovered/Not Resolved]
  - Procedural pain [Not Recovered/Not Resolved]
  - Blood potassium decreased [Not Recovered/Not Resolved]
  - Epistaxis [Not Recovered/Not Resolved]
  - Foot deformity [Not Recovered/Not Resolved]
  - Dizziness [Not Recovered/Not Resolved]
  - Gastrointestinal viral infection [Not Recovered/Not Resolved]
  - Vomiting [Not Recovered/Not Resolved]
  - Headache [Not Recovered/Not Resolved]
  - Nausea [Not Recovered/Not Resolved]
  - Pyrexia [Not Recovered/Not Resolved]
  - Medication error [Not Recovered/Not Resolved]
